FAERS Safety Report 21172301 (Version 1)
Quarter: 2022Q3

REPORT INFORMATION
  Report Type: Report from Study
  Country: US (occurrence: US)
  Receive Date: 20220804
  Receipt Date: 20220804
  Transmission Date: 20221026
  Serious: No
  Sender: FDA-Public Use
  Company Number: US-AGIOS-2207US03099

PATIENT
  Sex: Male

DRUGS (4)
  1. MITAPIVAT [Suspect]
     Active Substance: MITAPIVAT
     Indication: Pyruvate kinase deficiency anaemia
     Dosage: 50 MILLIGRAM
     Route: 048
     Dates: start: 20220415
  2. MITAPIVAT [Suspect]
     Active Substance: MITAPIVAT
     Dosage: 5 MILLIGRAM
     Route: 048
     Dates: start: 20220416
  3. MITAPIVAT [Suspect]
     Active Substance: MITAPIVAT
     Dosage: 20 MILLIGRAM
     Route: 048
     Dates: start: 20220520
  4. MITAPIVAT [Suspect]
     Active Substance: MITAPIVAT
     Dosage: 50 MILLIGRAM, BID
     Route: 048
     Dates: start: 20220717

REACTIONS (9)
  - Blood iron increased [Unknown]
  - Red blood cell count decreased [Unknown]
  - Haematocrit decreased [Unknown]
  - Haemoglobin decreased [Unknown]
  - Platelet count increased [Recovered/Resolved]
  - COVID-19 [Unknown]
  - Blood bilirubin abnormal [Recovering/Resolving]
  - Jaundice [Recovering/Resolving]
  - Platelet count increased [Recovered/Resolved]
